FAERS Safety Report 4568300-2 (Version None)
Quarter: 2005Q1

REPORT INFORMATION
  Report Type: 
  Country: None (occurrence: None)
  Receive Date: 20050202
  Receipt Date: 20050120
  Transmission Date: 20050727
  Serious: Yes (Life-Threatening)
  Sender: FDA-Public Use
  Company Number: FR-GLAXOSMITHKLINE-B0365800B

PATIENT
  Sex: Female
  Weight: 2.6 kg

DRUGS (4)
  1. DEROXAT [Suspect]
     Indication: ILL-DEFINED DISORDER
     Dates: end: 20041220
  2. ATARAX [Suspect]
     Dates: end: 20041220
  3. MEPRONIZINE [Suspect]
     Dates: end: 20041220
  4. DIANTALVIC [Concomitant]
     Indication: BRONCHITIS

REACTIONS (9)
  - CARDIOMYOPATHY [None]
  - DRUG EXPOSURE DURING PREGNANCY [None]
  - DUCTUS ARTERIOSUS PREMATURE CLOSURE [None]
  - HYPOXIA [None]
  - PYELOCALIECTASIS [None]
  - RESPIRATORY DISTRESS [None]
  - URETERIC DILATATION [None]
  - VENTRICULAR HYPERTROPHY [None]
  - VENTRICULAR HYPOKINESIA [None]
